FAERS Safety Report 24239079 (Version 3)
Quarter: 2024Q4

REPORT INFORMATION
  Report Type: Spontaneous
  Country: US (occurrence: US)
  Receive Date: 20240822
  Receipt Date: 20241211
  Transmission Date: 20250115
  Serious: Yes (Hospitalization)
  Sender: AVADEL CNS PHARMACEUTICALS, LLC
  Company Number: US-AVADEL CNS PHARMACEUTICALS, LLC-2024AVA01171

PATIENT
  Sex: Female
  Weight: 59.41 kg

DRUGS (22)
  1. LUMRYZ [Suspect]
     Active Substance: SODIUM OXYBATE
     Indication: Narcolepsy
     Dosage: 4.5 G, ONCE NIGHTLY
     Route: 048
     Dates: start: 20240706, end: 20240707
  2. LUMRYZ [Suspect]
     Active Substance: SODIUM OXYBATE
     Indication: Cataplexy
  3. OMEPRAZOLE [Concomitant]
     Active Substance: OMEPRAZOLE
  4. IMMUNE GLOBULIN NOS [Concomitant]
     Active Substance: IMMUNE GLOBULIN NOS
     Route: 042
  5. COLCHICINE [Concomitant]
     Active Substance: COLCHICINE
  6. REFRESH CLASSIC [Concomitant]
     Active Substance: POLYVINYL ALCOHOL\POVIDONE
  7. CEQUA [Concomitant]
     Active Substance: CYCLOSPORINE
  8. IVIZIA DRY EYE [Concomitant]
     Active Substance: POVIDONE
  9. UBRELVY [Concomitant]
     Active Substance: UBROGEPANT
  10. ONDANSETRON HYDROCHLORIDE [Concomitant]
     Active Substance: ONDANSETRON HYDROCHLORIDE
  11. EVENITY [Concomitant]
     Active Substance: ROMOSOZUMAB-AQQG
  12. METOPROLOL SUCCINATE [Concomitant]
     Active Substance: METOPROLOL SUCCINATE
  13. ADDERALL [Concomitant]
     Active Substance: AMPHETAMINE ASPARTATE\AMPHETAMINE SULFATE\DEXTROAMPHETAMINE SACCHARATE\DEXTROAMPHETAMINE SULFATE
  14. ASPIRIN [Concomitant]
     Active Substance: ASPIRIN
  15. D-BIOTIN [Concomitant]
  16. BOTOX [Concomitant]
     Active Substance: ONABOTULINUMTOXINA
  17. SOLIFENACIN SUCCINATE [Concomitant]
     Active Substance: SOLIFENACIN SUCCINATE
  18. GABAPENTIN [Concomitant]
     Active Substance: GABAPENTIN
  19. TOPIRAMATE [Concomitant]
     Active Substance: TOPIRAMATE
  20. VITAMIN D2 [Concomitant]
     Active Substance: ERGOCALCIFEROL
  21. RANOLAZINE [Concomitant]
     Active Substance: RANOLAZINE
     Dosage: UNK
  22. RINVOQ [Concomitant]
     Active Substance: UPADACITINIB
     Dosage: UNK
     Dates: end: 202409

REACTIONS (5)
  - Pneumothorax [Unknown]
  - Pulmonary mass [Not Recovered/Not Resolved]
  - Nausea [Unknown]
  - Dizziness [Unknown]
  - Hyperhidrosis [Unknown]

NARRATIVE: CASE EVENT DATE: 20240101
